FAERS Safety Report 10041423 (Version 6)
Quarter: 2014Q2

REPORT INFORMATION
  Report Type: Report from Study
  Country: ES (occurrence: ES)
  Receive Date: 20140327
  Receipt Date: 20140501
  Transmission Date: 20141212
  Serious: Yes (Hospitalization)
  Sender: FDA-Public Use
  Company Number: ES-EISAI INC-E7389-04717-CLI-ES

PATIENT
  Age: 60 Year
  Sex: Female

DRUGS (22)
  1. ERIBULIN [Suspect]
     Indication: BLADDER CANCER
     Dosage: 1.0 MG/M2; 2.0 MG
     Route: 041
     Dates: start: 20140122, end: 20140129
  2. ERIBULIN [Suspect]
     Dosage: 0.7 MG/M2; 1.4 MG
     Route: 041
     Dates: start: 20140220, end: 20140220
  3. ERIBULIN [Suspect]
     Dosage: 0.90 MG
     Route: 041
     Dates: start: 20140312, end: 20140312
  4. GEMCITABINE [Suspect]
     Indication: BLADDER CANCER
     Dosage: 1000 MG/M2; 1980 MG
     Route: 041
     Dates: start: 20140122, end: 20140129
  5. GEMCITABINE [Suspect]
     Dosage: 500 MG/M2; 990 MG
     Route: 041
     Dates: start: 20140220, end: 20140220
  6. GEMCITABINE [Suspect]
     Dosage: 950 MG
     Route: 041
     Dates: start: 20140312, end: 20140312
  7. CISPLATIN [Suspect]
     Indication: BLADDER CANCER
     Dosage: 70.0 MG/M2; 140 MG
     Route: 041
     Dates: start: 20140122, end: 20140220
  8. CISPLATIN [Suspect]
     Dosage: 100 MG
     Route: 041
     Dates: start: 20140312, end: 20140312
  9. MYCOSTATIN [Concomitant]
     Indication: STOMATITIS
     Dosage: UNKNOWN
     Route: 048
     Dates: start: 20140129
  10. VENLAFAXINE [Concomitant]
     Indication: DEPRESSION
     Route: 048
     Dates: start: 2003
  11. GABAPENTINE [Concomitant]
     Indication: NEURALGIA
     Dosage: UNKNOWN
     Route: 048
     Dates: start: 20140110
  12. OMEPRAZOL [Concomitant]
     Indication: PROPHYLAXIS AGAINST GASTROINTESTINAL ULCER
     Route: 048
     Dates: start: 20140104
  13. VALSARTAN [Concomitant]
     Indication: HYPERTENSION
     Dosage: 80 MG
     Dates: start: 201301, end: 201402
  14. VALSARTAN [Concomitant]
     Dosage: 160 MG
     Dates: start: 20140225
  15. TRAMADOL [Concomitant]
     Indication: TUMOUR PAIN
     Route: 048
     Dates: start: 20140107
  16. ACETAMINOPHEN [Concomitant]
     Indication: TUMOUR PAIN
     Dosage: UNKNOWN
     Route: 048
     Dates: start: 20140107
  17. ALPRAZOLAM [Concomitant]
     Indication: ANXIETY
     Dosage: 0.5 MG
     Route: 048
     Dates: start: 2003
  18. METOCHLOPRAMIDE [Concomitant]
     Indication: PROPHYLAXIS OF NAUSEA AND VOMITING
     Dosage: UNKNOWN
     Route: 042
     Dates: start: 20140203, end: 20140211
  19. LORAZEPAM [Concomitant]
     Indication: ANXIETY
     Dosage: UNKNOWN
     Route: 060
     Dates: start: 20140225, end: 20140305
  20. LORAZEPAM [Concomitant]
     Dosage: UNKNOWN
     Route: 042
     Dates: start: 20140407, end: 20140410
  21. LACTULOSE [Concomitant]
     Indication: CONSTIPATION
     Dosage: UNKNOWN
     Route: 048
     Dates: start: 20140203, end: 20140211
  22. LACTULOSE [Concomitant]
     Indication: CONSTIPATION PROPHYLAXIS

REACTIONS (4)
  - Deep vein thrombosis [Recovered/Resolved]
  - Neutropenia [Recovered/Resolved]
  - Thrombocytopenia [Recovered/Resolved]
  - Vomiting [Recovered/Resolved]
